FAERS Safety Report 20547737 (Version 1)
Quarter: 2022Q1

REPORT INFORMATION
  Report Type: Spontaneous
  Country: US (occurrence: US)
  Receive Date: 20220303
  Receipt Date: 20220303
  Transmission Date: 20220423
  Serious: No
  Sender: FDA-Public Use
  Company Number: US-PFIZER INC-2021701637

PATIENT
  Age: 50 Year
  Sex: Male
  Weight: 86.168 kg

DRUGS (1)
  1. BOSULIF [Suspect]
     Active Substance: BOSUTINIB MONOHYDRATE
     Indication: Chronic myeloid leukaemia
     Dosage: 300 MG, DAILY(100MG(3TABS)ORAL)
     Route: 048

REACTIONS (2)
  - Arthralgia [Unknown]
  - Muscle spasms [Unknown]
